FAERS Safety Report 12095500 (Version 1)
Quarter: 2016Q1

REPORT INFORMATION
  Report Type: Spontaneous
  Country: DE (occurrence: DE)
  Receive Date: 20160219
  Receipt Date: 20160219
  Transmission Date: 20160526
  Serious: Yes (Life-Threatening, Hospitalization, Other)
  Sender: FDA-Public Use
  Company Number: DE-DEP_09901_2015

PATIENT
  Age: 22 Year
  Sex: Female
  Weight: 45 kg

DRUGS (5)
  1. PALEXIA [Suspect]
     Active Substance: TAPENTADOL HYDROCHLORIDE
     Indication: PAIN
     Dosage: UNK
     Route: 048
  2. PALEXIA [Suspect]
     Active Substance: TAPENTADOL HYDROCHLORIDE
     Dosage: ONCE
     Route: 048
     Dates: start: 20150728
  3. L-THYROXIN - LEVOTHYROXINE SODIUM [Concomitant]
     Dosage: 25 MCG
  4. PANTOPRAZOL - PANTOPRAZOLE SODIUM SESQUIHYDRATE [Concomitant]
     Dosage: 40 MG
  5. VITAMIN D - ERGOCALCIFEROL [Concomitant]
     Dosage: DF

REACTIONS (7)
  - Overdose [Unknown]
  - Apnoea [Recovered/Resolved]
  - Nightmare [Recovering/Resolving]
  - Cyanosis [Recovered/Resolved]
  - Coma [Recovered/Resolved]
  - Hallucination [Recovering/Resolving]
  - Suicide attempt [Recovering/Resolving]

NARRATIVE: CASE EVENT DATE: 20150728
